FAERS Safety Report 8969637 (Version 1)
Quarter: 2012Q4

REPORT INFORMATION
  Report Type: 
  Country: US (occurrence: US)
  Receive Date: 20121217
  Receipt Date: 20121217
  Transmission Date: 20130627
  Serious: Yes (Other)
  Sender: FDA-Public Use
  Company Number: CHPA2012US024906

PATIENT
  Age: 37 Year
  Sex: Female

DRUGS (3)
  1. TRIAMINIC DAY TIME COLD + COUGH [Suspect]
     Indication: COUGH
     Dosage: 2 strips TID, as needed
     Route: 048
  2. TRIAMINIC [Suspect]
     Indication: COUGH
     Dosage: 2 strips TID, as needed
     Route: 048
  3. TRIAMINIC NIGHT TIME COLD + COUGH [Suspect]
     Indication: COUGH
     Dosage: 2 strips TID, as needed
     Route: 048

REACTIONS (9)
  - Cough [Not Recovered/Not Resolved]
  - Disease recurrence [Not Recovered/Not Resolved]
  - Cyst [Not Recovered/Not Resolved]
  - Lower limb fracture [Recovered/Resolved]
  - Lip swelling [Not Recovered/Not Resolved]
  - Blister [Not Recovered/Not Resolved]
  - Incorrect dose administered [Unknown]
  - Lip blister [None]
  - Oral mucosal blistering [None]
